FAERS Safety Report 15407051 (Version 1)
Quarter: 2018Q3

REPORT INFORMATION
  Report Type: Spontaneous
  Country: US (occurrence: US)
  Receive Date: 20180912
  Receipt Date: 20180912
  Transmission Date: 20181010
  Serious: Yes (Death)
  Sender: FDA-Public Use
  Company Number: None

PATIENT
  Age: 54 Year
  Sex: Female
  Weight: 100 kg

DRUGS (1)
  1. APIXABAN 2.5/5.0 MG (DOUBLE BLINDED) [Suspect]
     Active Substance: APIXABAN
     Indication: THROMBOSIS PROPHYLAXIS
     Route: 048
     Dates: start: 20180417, end: 20180910

REACTIONS (13)
  - Respiratory failure [None]
  - Cardiac arrest [None]
  - Hypoventilation [None]
  - Abdominal distension [None]
  - Cough [None]
  - Cardiogenic shock [None]
  - Ventricular tachycardia [None]
  - Unresponsive to stimuli [None]
  - Pneumonia [None]
  - Malaise [None]
  - Obstructive airways disorder [None]
  - Pulseless electrical activity [None]
  - Metabolic acidosis [None]

NARRATIVE: CASE EVENT DATE: 20180910
